FAERS Safety Report 9233090 (Version 2)
Quarter: 2013Q4

REPORT INFORMATION
  Report Type: Report from Study
  Country: US (occurrence: US)
  Receive Date: 20130416
  Receipt Date: 20131017
  Transmission Date: 20140711
  Serious: No
  Sender: FDA-Public Use
  Company Number: PHEH2013US008237

PATIENT
  Sex: Male

DRUGS (7)
  1. TASIGNA [Suspect]
     Indication: CHRONIC MYELOID LEUKAEMIA
     Dosage: 400 MG, BID
     Route: 048
  2. MAGNESIUM [Concomitant]
     Dosage: 300 MG
  3. BENICAR [Concomitant]
     Dosage: 5 MG
  4. METFORMIN [Concomitant]
     Dosage: 850 MG
  5. NEXIUM [Concomitant]
     Dosage: 20 MG
  6. VITAMIN B12 [Concomitant]
     Dosage: 1000 UG, UNK
  7. TESTOS [Concomitant]

REACTIONS (5)
  - Skin exfoliation [Unknown]
  - Abdominal pain upper [Unknown]
  - Constipation [Unknown]
  - Nausea [Unknown]
  - Rash [Unknown]
